FAERS Safety Report 15907712 (Version 5)
Quarter: 2019Q3

REPORT INFORMATION
  Report Type: Report from Study
  Country: CA (occurrence: CA)
  Receive Date: 20190204
  Receipt Date: 20190928
  Transmission Date: 20191004
  Serious: Yes (Other)
  Sender: FDA-Public Use
  Company Number: PHHY2017CA134862

PATIENT
  Age: 35 Year
  Sex: Female

DRUGS (19)
  1. COSENTYX [Suspect]
     Active Substance: SECUKINUMAB
     Dosage: 150 MG, QMO
     Route: 058
     Dates: start: 20180730
  2. COSENTYX [Suspect]
     Active Substance: SECUKINUMAB
     Dosage: 150 MG, QW
     Route: 058
     Dates: start: 20170309
  3. COSENTYX [Suspect]
     Active Substance: SECUKINUMAB
     Dosage: 150 MG, QMO
     Route: 058
     Dates: start: 20180511
  4. COSENTYX [Suspect]
     Active Substance: SECUKINUMAB
     Dosage: 150 MG, UNK (RECEIVED 6 DAYS EARLY)
     Route: 058
     Dates: start: 20180605
  5. COSENTYX [Suspect]
     Active Substance: SECUKINUMAB
     Dosage: 150 MG, QMO
     Route: 058
     Dates: start: 20180703
  6. COSENTYX [Suspect]
     Active Substance: SECUKINUMAB
     Dosage: 150 MG, Q3W
     Route: 058
     Dates: start: 20190903
  7. COSENTYX [Suspect]
     Active Substance: SECUKINUMAB
     Dosage: 150 MG, QMO
     Route: 058
     Dates: start: 20190410
  8. NAPROXEN. [Concomitant]
     Active Substance: NAPROXEN
     Indication: PRODUCT USED FOR UNKNOWN INDICATION
     Dosage: 1 DF, BID
     Route: 048
  9. COSENTYX [Suspect]
     Active Substance: SECUKINUMAB
     Dosage: 150 MG, QMO
     Route: 058
     Dates: start: 20170406
  10. COSENTYX [Suspect]
     Active Substance: SECUKINUMAB
     Dosage: UNK
     Route: 065
     Dates: start: 20171004
  11. COSENTYX [Suspect]
     Active Substance: SECUKINUMAB
     Dosage: 150 MG, QMO
     Route: 058
     Dates: start: 20171103
  12. COSENTYX [Suspect]
     Active Substance: SECUKINUMAB
     Dosage: 150 MG, QMO
     Route: 058
     Dates: start: 20181126
  13. COSENTYX [Suspect]
     Active Substance: SECUKINUMAB
     Indication: ANKYLOSING SPONDYLITIS
     Dosage: 150 MG, QW
     Route: 058
     Dates: start: 20170209
  14. COSENTYX [Suspect]
     Active Substance: SECUKINUMAB
     Dosage: 150 MG, QMO
     Route: 058
     Dates: start: 20180406
  15. COSENTYX [Suspect]
     Active Substance: SECUKINUMAB
     Dosage: 150 MG, QMO
     Route: 058
     Dates: start: 20181224
  16. COSENTYX [Suspect]
     Active Substance: SECUKINUMAB
     Dosage: 150 MG, QW
     Route: 058
     Dates: start: 20170302
  17. COSENTYX [Suspect]
     Active Substance: SECUKINUMAB
     Dosage: 150 MG, QMO
     Route: 058
     Dates: start: 20170802
  18. COSENTYX [Suspect]
     Active Substance: SECUKINUMAB
     Dosage: 150 MG, QMO (SENSOREADY PEN)
     Route: 058
     Dates: start: 20171215
  19. COSENTYX [Suspect]
     Active Substance: SECUKINUMAB
     Dosage: 150 MG, QMO
     Route: 058
     Dates: start: 20190506

REACTIONS (14)
  - Influenza like illness [Recovering/Resolving]
  - Back pain [Recovering/Resolving]
  - Cough [Unknown]
  - Abscess oral [Unknown]
  - Pneumonia [Recovering/Resolving]
  - Influenza [Recovered/Resolved]
  - Viral infection [Recovering/Resolving]
  - Infection [Unknown]
  - Arthralgia [Unknown]
  - Headache [Unknown]
  - Nasopharyngitis [Unknown]
  - Inappropriate schedule of product administration [Unknown]
  - Nasal congestion [Unknown]
  - Rhinorrhoea [Unknown]

NARRATIVE: CASE EVENT DATE: 2017
